FAERS Safety Report 5606133-6 (Version None)
Quarter: 2008Q1

REPORT INFORMATION
  Report Type: 
  Country: None (occurrence: None)
  Receive Date: 20080125
  Receipt Date: 20080125
  Transmission Date: 20080703
  Serious: No
  Sender: FDA-Public Use
  Company Number: None

PATIENT
  Sex: Female

DRUGS (3)
  1. XANAX [Suspect]
     Indication: ANXIETY DISORDER
     Dosage: 0.25MG ONE EVERY 8HOURS AS NEEDED ORAL
     Route: 048
     Dates: start: 20070604
  2. XANAX [Suspect]
     Indication: ANXIETY DISORDER
     Dosage: 0.25MG ONE EVERY 8HOURS AS NEEDED ORAL
     Route: 048
     Dates: start: 20071207
  3. XANAX [Suspect]
     Indication: ANXIETY DISORDER
     Dosage: 0.25MG ONE EVERY 8HOURS AS NEEDED ORAL
     Route: 048
     Dates: start: 20071211

REACTIONS (2)
  - DRUG INEFFECTIVE [None]
  - PHARMACEUTICAL PRODUCT COMPLAINT [None]
